FAERS Safety Report 12637658 (Version 1)
Quarter: 2016Q3

REPORT INFORMATION
  Report Type: Spontaneous
  Country: US (occurrence: US)
  Receive Date: 20160809
  Receipt Date: 20160809
  Transmission Date: 20161109
  Serious: No
  Sender: FDA-Public Use
  Company Number: US-ABBVIE-16K-163-1674915-00

PATIENT
  Sex: Female

DRUGS (3)
  1. DEPAKOTE [Suspect]
     Active Substance: DIVALPROEX SODIUM
     Indication: CONCUSSION
  2. DEPAKOTE [Suspect]
     Active Substance: DIVALPROEX SODIUM
     Indication: MIGRAINE
     Route: 048
     Dates: start: 201607
  3. GABAPENTIN. [Concomitant]
     Active Substance: GABAPENTIN
     Indication: HEADACHE

REACTIONS (3)
  - Nausea [Not Recovered/Not Resolved]
  - Influenza [Not Recovered/Not Resolved]
  - Chills [Not Recovered/Not Resolved]
